FAERS Safety Report 15777265 (Version 1)
Quarter: 2018Q4

REPORT INFORMATION
  Report Type: Report from Study
  Country: US (occurrence: US)
  Receive Date: 20181231
  Receipt Date: 20181231
  Transmission Date: 20190205
  Serious: Yes (Other)
  Sender: FDA-Public Use
  Company Number: US-CLOVIS ONCOLOGY-CLO-2018-001357

PATIENT
  Age: 66 Year
  Sex: Female

DRUGS (2)
  1. RUBRACA [Suspect]
     Active Substance: RUCAPARIB CAMSYLATE
     Indication: FALLOPIAN TUBE CANCER
     Dosage: 600 MG, BID
     Dates: start: 201711
  2. RUBRACA [Suspect]
     Active Substance: RUCAPARIB CAMSYLATE
     Dosage: 600 MG, BID
     Dates: start: 20180219, end: 20180827

REACTIONS (20)
  - Anaemia [Unknown]
  - Blood sodium decreased [Unknown]
  - Abdominal pain upper [Recovered/Resolved]
  - Carbohydrate antigen 125 increased [Unknown]
  - Nausea [Recovering/Resolving]
  - Constipation [Unknown]
  - Blood potassium decreased [Unknown]
  - Fatigue [Unknown]
  - Thrombocytopenia [Unknown]
  - Emotional disorder [Unknown]
  - Depression [Unknown]
  - Anxiety [Unknown]
  - Hypoaesthesia [Recovering/Resolving]
  - Paraesthesia [Recovering/Resolving]
  - Dysphoria [Unknown]
  - Rash [Unknown]
  - Neoplasm recurrence [Unknown]
  - Arthralgia [Unknown]
  - Hypersensitivity [Unknown]
  - Sleep disorder [Unknown]

NARRATIVE: CASE EVENT DATE: 201804
